FAERS Safety Report 10216894 (Version 1)
Quarter: 2014Q2

REPORT INFORMATION
  Report Type: Report from Study
  Country: GB (occurrence: GB)
  Receive Date: 20140604
  Receipt Date: 20140604
  Transmission Date: 20141212
  Serious: Yes (Hospitalization)
  Sender: FDA-Public Use
  Company Number: GB-GLAXOSMITHKLINE-B0991686B

PATIENT
  Age: 68 Year
  Sex: Female

DRUGS (8)
  1. OFATUMUMAB [Suspect]
     Indication: CHRONIC LYMPHOCYTIC LEUKAEMIA
     Dosage: 1000MG CYCLIC
     Route: 042
     Dates: start: 20131108, end: 20140417
  2. IDELALISIB [Suspect]
     Indication: CHRONIC LYMPHOCYTIC LEUKAEMIA
     Dosage: 150MG TWICE PER DAY
     Route: 048
     Dates: start: 20131108
  3. ACYCLOVIR [Concomitant]
     Dates: start: 2013
  4. LANSOPRAZOLE [Concomitant]
     Dates: start: 2013
  5. PARACETAMOL [Concomitant]
     Dates: start: 2014
  6. VITAMIN D [Concomitant]
  7. EVOREL [Concomitant]
  8. FLUCONAZOLE [Concomitant]

REACTIONS (2)
  - Neutrophil count decreased [Recovered/Resolved]
  - Pyrexia [Recovered/Resolved]
